FAERS Safety Report 4620402-8 (Version None)
Quarter: 2005Q1

REPORT INFORMATION
  Report Type: 
  Country: None (occurrence: None)
  Receive Date: 20050321
  Receipt Date: 20050321
  Transmission Date: 20050727
  Serious: Yes (Death)
  Sender: FDA-Public Use
  Company Number: None

PATIENT
  Age: 71 Year
  Sex: Male
  Weight: 57 kg

DRUGS (1)
  1. GAMMAGARD [Suspect]
     Indication: NEUROPATHY
     Dosage: 30 GM IV Q 2 WKS
     Route: 042
     Dates: start: 20050308

REACTIONS (1)
  - CARDIAC ARREST [None]
